FAERS Safety Report 7907339-3 (Version None)
Quarter: 2011Q4

REPORT INFORMATION
  Report Type: 
  Country: None (occurrence: None)
  Receive Date: 20111110
  Receipt Date: 20111101
  Transmission Date: 20120403
  Serious: Yes (Hospitalization)
  Sender: FDA-Public Use
  Company Number: JP-GLAXOSMITHKLINE-B0760602A

PATIENT
  Sex: Female

DRUGS (2)
  1. IOPAMIDOL [Concomitant]
     Indication: ANGIOGRAM
     Dosage: 100MG PER DAY
  2. LAMICTAL [Suspect]
     Indication: EPILEPSY
     Dosage: 75MG PER DAY
     Route: 048

REACTIONS (3)
  - EPILEPSY [None]
  - PYREXIA [None]
  - LIVER DISORDER [None]
